FAERS Safety Report 20202843 (Version 3)
Quarter: 2022Q1

REPORT INFORMATION
  Report Type: Spontaneous
  Country: US (occurrence: US)
  Receive Date: 20211218
  Receipt Date: 20220202
  Transmission Date: 20220423
  Serious: No
  Sender: FDA-Public Use
  Company Number: US-SANOFI-00892275

PATIENT
  Age: 71 Year
  Sex: Female

DRUGS (1)
  1. APIDRA SOLOSTAR [Suspect]
     Active Substance: INSULIN GLULISINE
     Indication: Type 1 diabetes mellitus
     Dosage: 10 SLIDING SCALE
     Route: 065
     Dates: start: 2006

REACTIONS (2)
  - Blood glucose abnormal [Unknown]
  - Drug ineffective [Unknown]
